FAERS Safety Report 13893004 (Version 1)
Quarter: 2017Q3

REPORT INFORMATION
  Report Type: Spontaneous
  Country: US (occurrence: US)
  Receive Date: 20170822
  Receipt Date: 20170822
  Transmission Date: 20171127
  Serious: No
  Sender: FDA-Public Use
  Company Number: US-ROCHE-1061093

PATIENT
  Age: 56 Year
  Sex: Female

DRUGS (1)
  1. HERCEPTIN [Suspect]
     Active Substance: TRASTUZUMAB
     Indication: INVASIVE DUCTAL BREAST CARCINOMA
     Route: 065
     Dates: start: 201201, end: 20120323

REACTIONS (5)
  - Lymphadenopathy [Recovering/Resolving]
  - Dyspnoea [Recovering/Resolving]
  - Interstitial lung disease [Recovering/Resolving]
  - Dyspnoea exertional [Recovering/Resolving]
  - Pulmonary mass [Recovering/Resolving]
